FAERS Safety Report 6372425-9 (Version None)
Quarter: 2009Q3

REPORT INFORMATION
  Report Type: 
  Country: None (occurrence: None)
  Receive Date: 20090924
  Receipt Date: 20090423
  Transmission Date: 20100115
  Serious: Yes (Other)
  Sender: FDA-Public Use
  Company Number: US-ASTRAZENECA-2008UW15100

PATIENT
  Sex: Female

DRUGS (5)
  1. SEROQUEL [Suspect]
     Route: 048
  2. SEROQUEL [Suspect]
     Route: 048
     Dates: start: 19980101
  3. LISINOPRIL [Concomitant]
  4. TRAZODONE [Concomitant]
  5. PRILOSEC [Concomitant]

REACTIONS (11)
  - ABDOMINAL PAIN LOWER [None]
  - BLADDER DISORDER [None]
  - BLADDER PAIN [None]
  - BLOOD CHOLESTEROL INCREASED [None]
  - BLOOD CREATINE PHOSPHOKINASE INCREASED [None]
  - DIABETES MELLITUS [None]
  - HAEMATURIA [None]
  - MUSCLE SPASMS [None]
  - POLYURIA [None]
  - PYREXIA [None]
  - RASH PRURITIC [None]
